FAERS Safety Report 11816042 (Version 1)
Quarter: 2015Q4

REPORT INFORMATION
  Report Type: Spontaneous
  Country: US (occurrence: US)
  Receive Date: 20151209
  Receipt Date: 20151209
  Transmission Date: 20160305
  Serious: No
  Sender: FDA-Public Use
  Company Number: US-GALDERMA-US15007721

PATIENT
  Age: 86 Year
  Sex: Female

DRUGS (14)
  1. NEUTROGENA HEALTHY SKIN ENHANCER [Concomitant]
     Route: 061
     Dates: start: 2010
  2. ZESTRIL [Concomitant]
     Active Substance: LISINOPRIL
     Dosage: 10 MG
     Route: 048
  3. MAYBELIEN LIPSTICK [Concomitant]
     Route: 061
  4. SYNTHROID [Concomitant]
     Active Substance: LEVOTHYROXINE SODIUM
     Dosage: 0.015 MMG
     Route: 048
  5. METROGEL [Suspect]
     Active Substance: METRONIDAZOLE
     Indication: ROSACEA
     Route: 061
  6. WALGREENS LIQUID CLEANSER [Concomitant]
     Indication: THERAPEUTIC SKIN CARE TOPICAL
     Dates: start: 201505
  7. OLAY MOISUTIRZER WITH SPF 30 [Concomitant]
     Indication: DRY SKIN PROPHYLAXIS
     Route: 061
     Dates: start: 2013
  8. OLAY MOISUTIRZER WITH SPF 30 [Concomitant]
     Indication: PROPHYLAXIS AGAINST SOLAR RADIATION
  9. CALCIUM [Concomitant]
     Active Substance: CALCIUM
     Route: 048
  10. MIRVASO [Suspect]
     Active Substance: BRIMONIDINE TARTRATE
     Indication: ROSACEA
     Dosage: 0.33%
     Route: 061
     Dates: start: 20150514, end: 20151015
  11. VASELINE LOTION [Concomitant]
     Route: 061
  12. COLACE [Concomitant]
     Active Substance: DOCUSATE SODIUM
     Route: 048
  13. FISH OIL [Concomitant]
     Active Substance: FISH OIL
     Route: 048
  14. LIPITOR [Concomitant]
     Active Substance: ATORVASTATIN CALCIUM
     Dosage: 10 MG
     Route: 048

REACTIONS (9)
  - Acne [Recovered/Resolved]
  - Dermatitis allergic [Unknown]
  - Scab [Recovered/Resolved]
  - Pruritus [Recovered/Resolved]
  - Skin exfoliation [Recovered/Resolved]
  - Drug ineffective [Not Recovered/Not Resolved]
  - Rash papular [Not Recovered/Not Resolved]
  - Erythema [Recovered/Resolved]
  - Skin irritation [Recovered/Resolved]

NARRATIVE: CASE EVENT DATE: 201509
